FAERS Safety Report 7366390-5 (Version None)
Quarter: 2011Q1

REPORT INFORMATION
  Report Type: 
  Country: None (occurrence: None)
  Receive Date: 20110322
  Receipt Date: 20110308
  Transmission Date: 20110831
  Serious: Yes (Hospitalization)
  Sender: FDA-Public Use
  Company Number: US-JNJFOC-20061100512

PATIENT
  Sex: Male
  Weight: 40.1 kg

DRUGS (7)
  1. INFLIXIMAB [Suspect]
     Dosage: TOTAL 8 DOSES
     Route: 042
  2. INFLIXIMAB [Suspect]
     Dosage: 5TH DOSE
     Route: 042
  3. METRONIDAZOLE [Concomitant]
  4. MIRALAX [Concomitant]
  5. AZATHIOPRINE [Concomitant]
  6. INFLIXIMAB [Suspect]
     Indication: FISTULA
     Route: 042
  7. MESALAMINE [Concomitant]
     Route: 048

REACTIONS (1)
  - ANAL FISTULA [None]
